FAERS Safety Report 14229831 (Version 1)
Quarter: 2017Q4

REPORT INFORMATION
  Report Type: Spontaneous
  Country: US (occurrence: None)
  Receive Date: 20171127
  Receipt Date: 20171127
  Transmission Date: 20180321
  Serious: No
  Sender: FDA-Public Use
  Company Number: None

PATIENT
  Age: 54 Year
  Sex: Female
  Weight: 95.26 kg

DRUGS (1)
  1. ABACAVIR/LAMIVUDINE 600/300MG VIIV HEALTHCARE [Suspect]
     Active Substance: ABACAVIR SULFATE\LAMIVUDINE
     Indication: HIV INFECTION
     Route: 048
     Dates: start: 20171031

REACTIONS (2)
  - Lacrimation increased [None]
  - Product quality issue [None]

NARRATIVE: CASE EVENT DATE: 20171031
